FAERS Safety Report 26162920 (Version 1)
Quarter: 2025Q4

REPORT INFORMATION
  Report Type: Other
  Country: EU (occurrence: EU)
  Receive Date: 20251216
  Receipt Date: 20251216
  Transmission Date: 20260117
  Serious: Yes (Hospitalization, Other)
  Sender: ANI
  Company Number: EU-ANIPHARMA-035540

PATIENT
  Age: 83 Year
  Sex: Female
  Weight: 91 kg

DRUGS (21)
  1. CANDESARTAN CILEXETIL [Suspect]
     Active Substance: CANDESARTAN CILEXETIL
     Indication: Product used for unknown indication
     Route: 048
  2. DAPAGLIFLOZIN [Concomitant]
     Active Substance: DAPAGLIFLOZIN
     Indication: Product used for unknown indication
  3. ESOMEPRAZOLE [Concomitant]
     Active Substance: ESOMEPRAZOLE
     Indication: Product used for unknown indication
  4. FELODIPINE [Concomitant]
     Active Substance: FELODIPINE
     Indication: Product used for unknown indication
     Dosage: EXTENDED RELEASE
  5. ISOSORBIDE MONONITRATE [Concomitant]
     Active Substance: ISOSORBIDE MONONITRATE
     Indication: Product used for unknown indication
  6. METOPROLOL [Concomitant]
     Active Substance: METOPROLOL
     Indication: Product used for unknown indication
  7. OMEPRAZOLE [Concomitant]
     Active Substance: OMEPRAZOLE
     Indication: Product used for unknown indication
  8. RAMIPRIL [Concomitant]
     Active Substance: RAMIPRIL
     Indication: Product used for unknown indication
  9. COVID-19 vaccine [Concomitant]
     Indication: Product used for unknown indication
     Dosage: REGIMEN 1
     Dates: start: 20210208
  10. COVID-19 vaccine [Concomitant]
     Indication: Product used for unknown indication
     Dosage: REGIMEN 2
     Dates: start: 20210312
  11. COVID-19 vaccine [Concomitant]
     Indication: Product used for unknown indication
     Dosage: REGIMEN 9
     Dates: start: 20211021
  12. COVID-19 vaccine [Concomitant]
     Indication: Product used for unknown indication
     Dosage: REGIMEN 10
     Dates: start: 20211221
  13. ISOSORBIDE MONONITRATE [Concomitant]
     Active Substance: ISOSORBIDE MONONITRATE
     Indication: Product used for unknown indication
     Route: 048
  14. COVID-19 vaccine [Concomitant]
     Indication: Product used for unknown indication
     Dosage: REGIMEN 3
     Dates: start: 20210507
  15. COVID-19 vaccine [Concomitant]
     Indication: Product used for unknown indication
     Dosage: REGIMEN 4
     Dates: start: 20210517
  16. COVID-19 vaccine [Concomitant]
     Indication: Product used for unknown indication
     Dosage: REGIMEN 5
     Dates: start: 20210605
  17. COVID-19 vaccine [Concomitant]
     Indication: Product used for unknown indication
     Dosage: REGIMEN 6
     Dates: start: 20210622
  18. COVID-19 vaccine [Concomitant]
     Indication: Product used for unknown indication
     Dosage: REGIMEN 7
     Dates: start: 20210625
  19. COVID-19 vaccine [Concomitant]
     Indication: Product used for unknown indication
     Dosage: REGIMEN 8
     Dates: start: 20210703
  20. CANDESARTAN CILEXETIL [Suspect]
     Active Substance: CANDESARTAN CILEXETIL
     Indication: Product used for unknown indication
  21. ISOSORBIDE MONONITRATE [Concomitant]
     Active Substance: ISOSORBIDE MONONITRATE
     Indication: Product used for unknown indication

REACTIONS (28)
  - Osteoporosis [Unknown]
  - Hyponatraemia [Unknown]
  - Pericarditis [Not Recovered/Not Resolved]
  - Cardiospasm [Not Recovered/Not Resolved]
  - Eye pruritus [Unknown]
  - Pruritus [Recovering/Resolving]
  - Palmoplantar keratoderma [Not Recovered/Not Resolved]
  - Migraine [Not Recovered/Not Resolved]
  - Alopecia [Recovered/Resolved with Sequelae]
  - Pruritus genital [Unknown]
  - Vasculitis [Not Recovered/Not Resolved]
  - Carotid artery occlusion [Recovered/Resolved]
  - Transient ischaemic attack [Recovered/Resolved]
  - COVID-19 [Unknown]
  - Depression [Unknown]
  - Parkinsonism [Unknown]
  - Subarachnoid haemorrhage [Recovered/Resolved]
  - Abdominal discomfort [Unknown]
  - Myocardial infarction [Recovered/Resolved]
  - Urinary retention [Unknown]
  - Sedation complication [Unknown]
  - Hypotonia [Unknown]
  - Ataxia [Unknown]
  - Hypoglycaemia [Unknown]
  - Hypotension [Unknown]
  - Rash papular [Unknown]
  - Diabetes mellitus inadequate control [Unknown]
  - Angioedema [Unknown]

NARRATIVE: CASE EVENT DATE: 20210501
